FAERS Safety Report 23074488 (Version 1)
Quarter: 2023Q4

REPORT INFORMATION
  Report Type: Report from Study
  Country: EG (occurrence: EG)
  Receive Date: 20231017
  Receipt Date: 20231017
  Transmission Date: 20240110
  Serious: Yes (Hospitalization)
  Sender: FDA-Public Use
  Company Number: EG-Merck Healthcare KGaA-2023480461

PATIENT
  Age: 27 Year
  Sex: Female

DRUGS (2)
  1. REBIF [Suspect]
     Active Substance: INTERFERON BETA-1A
     Indication: Multiple sclerosis
     Route: 058
     Dates: start: 20170630
  2. REBIF [Suspect]
     Active Substance: INTERFERON BETA-1A

REACTIONS (4)
  - Mental disorder [Unknown]
  - Pain [Unknown]
  - Disturbance in attention [Unknown]
  - Nervousness [Unknown]
